FAERS Safety Report 7398278-8 (Version None)
Quarter: 2011Q2

REPORT INFORMATION
  Report Type: 
  Country: None (occurrence: None)
  Receive Date: 20110406
  Receipt Date: 20110404
  Transmission Date: 20111010
  Serious: Yes (Other)
  Sender: FDA-Public Use
  Company Number: US-ABBOTT-11P-163-0716670-00

PATIENT
  Sex: Female
  Weight: 45.4 kg

DRUGS (4)
  1. VICODIN [Suspect]
     Indication: BACK PAIN
     Dosage: LOWEST DOSE: 1/2 TABLET 2-3 TIMES/WEEK
  2. LISINOPRIL [Concomitant]
     Indication: PRODUCT USED FOR UNKNOWN INDICATION
  3. SIMVASTATIN [Concomitant]
     Indication: PRODUCT USED FOR UNKNOWN INDICATION
  4. ASPIRIN [Concomitant]
     Indication: PRODUCT USED FOR UNKNOWN INDICATION

REACTIONS (1)
  - DEAFNESS [None]
